FAERS Safety Report 6099615-7 (Version None)
Quarter: 2009Q1

REPORT INFORMATION
  Report Type: 
  Country: None (occurrence: None)
  Receive Date: 20090226
  Receipt Date: 20090216
  Transmission Date: 20090719
  Serious: Yes (Hospitalization, Other)
  Sender: FDA-Public Use
  Company Number: 2009AP000605

PATIENT
  Age: 34 Year
  Sex: Male

DRUGS (3)
  1. CITALOPRAM HYDROBROMIDE [Suspect]
     Indication: DEPRESSION
     Dosage: 20 MG QD; PO
     Route: 048
  2. TOPIRAMATE [Suspect]
     Indication: MIGRAINE
     Dosage: 25 MG QD;
  3. TOPIRAMATE [Suspect]
     Indication: PROPHYLAXIS
     Dosage: 25 MG QD;

REACTIONS (5)
  - ANGLE CLOSURE GLAUCOMA [None]
  - CORNEAL OEDEMA [None]
  - DRUG LEVEL BELOW THERAPEUTIC [None]
  - MYOPIA [None]
  - SCLERAL HYPERAEMIA [None]
